FAERS Safety Report 4757576-4 (Version None)
Quarter: 2005Q3

REPORT INFORMATION
  Report Type: 
  Country: None (occurrence: None)
  Receive Date: 20050831
  Receipt Date: 20050823
  Transmission Date: 20060218
  Serious: Yes (Death)
  Sender: FDA-Public Use
  Company Number: US-MERCK-0508USA03763

PATIENT
  Age: 45 Year
  Sex: Female

DRUGS (4)
  1. CANCIDAS [Suspect]
     Indication: WOUND INFECTION
     Route: 051
     Dates: start: 20050724, end: 20050724
  2. CANCIDAS [Suspect]
     Route: 051
     Dates: start: 20050725, end: 20050804
  3. CANCIDAS [Suspect]
     Route: 051
     Dates: start: 20050809, end: 20050812
  4. ANTIMICROBIAL (UNSPECIFIED) [Concomitant]
     Route: 065
     Dates: start: 20050101

REACTIONS (6)
  - CANDIDIASIS [None]
  - DRUG INEFFECTIVE [None]
  - HEPATIC ARTERY THROMBOSIS [None]
  - HEPATIC FAILURE [None]
  - POST PROCEDURAL BILE LEAK [None]
  - RETROPERITONEAL HAEMATOMA [None]
